FAERS Safety Report 5930690-3 (Version None)
Quarter: 2008Q4

REPORT INFORMATION
  Report Type: 
  Country: None (occurrence: None)
  Receive Date: 20081027
  Receipt Date: 20081013
  Transmission Date: 20090506
  Serious: Yes (Other)
  Sender: FDA-Public Use
  Company Number: US-PFIZER INC-2008087110

PATIENT
  Sex: Female

DRUGS (5)
  1. VFEND [Suspect]
     Indication: FUNGAL INFECTION
     Route: 048
     Dates: start: 20081003
  2. PREDNISONE TAB [Suspect]
     Indication: MYALGIA
     Dates: start: 19990101
  3. SULFAMETHOXAZOLE AND TRIMETHOPRIM [Suspect]
     Indication: CYSTITIS
  4. URISED [Concomitant]
  5. TYLENOL [Concomitant]

REACTIONS (18)
  - AGITATION [None]
  - COELIAC DISEASE [None]
  - CONSTIPATION [None]
  - COUGH [None]
  - CYSTITIS [None]
  - DIVERTICULITIS [None]
  - DRUG INEFFECTIVE [None]
  - DYSPNOEA [None]
  - EAR PAIN [None]
  - HAEMORRHAGE [None]
  - INJURY [None]
  - INSOMNIA [None]
  - LACTOSE INTOLERANCE [None]
  - NAUSEA [None]
  - NERVOUSNESS [None]
  - SJOGREN'S SYNDROME [None]
  - THINKING ABNORMAL [None]
  - VULVOVAGINAL MYCOTIC INFECTION [None]
